FAERS Safety Report 8363885 (Version 2)
Quarter: 2013Q1

REPORT INFORMATION
  Report Type: Report from Study
  Country: US (occurrence: US)
  Receive Date: 20120127
  Receipt Date: 20130129
  Transmission Date: 20140127
  Serious: No
  Sender: FDA-Public Use
  Company Number: US-ABBOTT-11P-163-0708519-00

PATIENT
  Age: 62 Year
  Sex: Male

DRUGS (25)
  1. HUMIRA 40 MG/0.8 ML PEN [Suspect]
     Indication: RHEUMATOID ARTHRITIS
     Dates: start: 201011
  2. HUMIRA 40 MG/0.8 ML PEN [Suspect]
  3. SAW PALMETTO [Concomitant]
     Indication: PRODUCT USED FOR UNKNOWN INDICATION
  4. CITRACEL [Concomitant]
     Indication: PRODUCT USED FOR UNKNOWN INDICATION
     Dosage: 10MG DAILY
  5. CALCIUM [Concomitant]
     Indication: PRODUCT USED FOR UNKNOWN INDICATION
  6. VITAMIN D [Concomitant]
     Indication: PRODUCT USED FOR UNKNOWN INDICATION
  7. K [Concomitant]
     Indication: PRODUCT USED FOR UNKNOWN INDICATION
     Dosage: 99MG DAILY
  8. COCONUT OIL [Concomitant]
     Indication: PRODUCT USED FOR UNKNOWN INDICATION
     Dosage: 2000UNITS DAILY
  9. FOLIC ACID [Concomitant]
     Indication: PRODUCT USED FOR UNKNOWN INDICATION
  10. METHOTREXATE [Concomitant]
     Indication: PRODUCT USED FOR UNKNOWN INDICATION
     Dosage: 25MG WEEKLY
  11. HYDRO-CHLOR [Concomitant]
     Indication: PRODUCT USED FOR UNKNOWN INDICATION
  12. TRIME/HCTZ [Concomitant]
     Indication: PRODUCT USED FOR UNKNOWN INDICATION
     Dosage: 3705/2.5 DAILY
  13. LEVOCOR [Concomitant]
     Indication: PRODUCT USED FOR UNKNOWN INDICATION
     Dosage: 10MG WEEKLY
  14. PREDNISONE [Concomitant]
     Indication: PRODUCT USED FOR UNKNOWN INDICATION
     Dosage: 2.5MG DAILY
  15. PREDNISONE [Concomitant]
  16. VIOXX/APAP [Concomitant]
     Indication: PRODUCT USED FOR UNKNOWN INDICATION
     Dosage: 5/325 THREE TIMES A DAY
  17. PROVIGIL [Concomitant]
     Indication: PRODUCT USED FOR UNKNOWN INDICATION
  18. CORDURA [Concomitant]
     Indication: PRODUCT USED FOR UNKNOWN INDICATION
     Dosage: 80MG DAILY
  19. NIFEDIAC CC [Concomitant]
     Indication: PRODUCT USED FOR UNKNOWN INDICATION
     Dosage: 90MG DAILY
  20. PLAQUENIL [Concomitant]
     Indication: PRODUCT USED FOR UNKNOWN INDICATION
     Dosage: 200MG 2 CAPSULES
  21. LUPROVORIN [Concomitant]
     Indication: PRODUCT USED FOR UNKNOWN INDICATION
  22. HYDROCODONE [Concomitant]
     Indication: PAIN
     Dosage: 5/325MG 3 TABLETS EVERY DAY
  23. DIOXIN [Concomitant]
     Indication: PRODUCT USED FOR UNKNOWN INDICATION
     Dosage: IN THE MORNING
  24. AFRIN [Concomitant]
     Indication: HYPERSENSITIVITY
  25. ADALAT [Concomitant]
     Indication: PRODUCT USED FOR UNKNOWN INDICATION
     Dosage: PRN

REACTIONS (18)
  - Ill-defined disorder [Not Recovered/Not Resolved]
  - Emphysema [Not Recovered/Not Resolved]
  - Arthropathy [Not Recovered/Not Resolved]
  - Injection site pain [Recovered/Resolved]
  - Injection site discomfort [Not Recovered/Not Resolved]
  - Nasopharyngitis [Not Recovered/Not Resolved]
  - Upper respiratory tract congestion [Not Recovered/Not Resolved]
  - Dyspnoea [Not Recovered/Not Resolved]
  - Malaise [Not Recovered/Not Resolved]
  - Pneumonia [Not Recovered/Not Resolved]
  - Arthropathy [Not Recovered/Not Resolved]
  - Pain in extremity [Not Recovered/Not Resolved]
  - Arthralgia [Not Recovered/Not Resolved]
  - Drug ineffective [Not Recovered/Not Resolved]
  - Gait disturbance [Not Recovered/Not Resolved]
  - Neck pain [Not Recovered/Not Resolved]
  - Back pain [Not Recovered/Not Resolved]
  - Exostosis [Not Recovered/Not Resolved]
